FAERS Safety Report 16613918 (Version 1)
Quarter: 2019Q3

REPORT INFORMATION
  Report Type: Spontaneous
  Country: DE (occurrence: DE)
  Receive Date: 20190723
  Receipt Date: 20190723
  Transmission Date: 20191004
  Serious: Yes (Hospitalization)
  Sender: FDA-Public Use
  Company Number: DE-SUN PHARMACEUTICAL INDUSTRIES LTD-2019RR-214448

PATIENT
  Age: 40 Year
  Sex: Female
  Weight: 56 kg

DRUGS (14)
  1. NEUPOGEN 48MIO.E. [Concomitant]
     Indication: PRODUCT USED FOR UNKNOWN INDICATION
     Dosage: 48 MIO I.E., NACH LABOR, INJEKTIONS-/INFUSIONSLOSUNG ()
     Route: 042
  2. HALOPERIDOL. [Concomitant]
     Active Substance: HALOPERIDOL
     Indication: PRODUCT USED FOR UNKNOWN INDICATION
     Dosage: 3 GTT, BEI BEDARF, TROPFEN ()
     Route: 048
  3. FLUOROURACIL. [Suspect]
     Active Substance: FLUOROURACIL
     Indication: PRODUCT USED FOR UNKNOWN INDICATION
     Dosage: 2800 MG/M2, ZULETZT AM10.11.2017, INJEKTIONS-/INFUSIONSLOUNG ()
     Route: 042
  4. AFLIBERCEPT [Suspect]
     Active Substance: AFLIBERCEPT
     Indication: PRODUCT USED FOR UNKNOWN INDICATION
     Dosage: 4 MG/KG KG, NACH SCHEZULETZT AM10.11.2017MA, INJEKTIONS-/INFUSIONSLOSUNG ()
     Route: 042
  5. DEXAMETHASON [Concomitant]
     Active Substance: DEXAMETHASONE
     Indication: PRODUCT USED FOR UNKNOWN INDICATION
     Dosage: 8 MG, NACH SCHEMA, TABLETTEN ()
     Route: 048
  6. ONDANSETRON [Concomitant]
     Active Substance: ONDANSETRON
     Indication: PRODUCT USED FOR UNKNOWN INDICATION
     Dosage: 8 MG, NACH SCHEMA, TABLETTEN ()
     Route: 048
  7. VITIS COMP. [Concomitant]
     Indication: PRODUCT USED FOR UNKNOWN INDICATION
     Dosage: 20|40|20|40 MG, 1-1-1-0, TABLETTEN ()
     Route: 048
  8. MISTEL [Concomitant]
     Indication: PRODUCT USED FOR UNKNOWN INDICATION
     Dosage: 0.2 MG, 1-1-1-0, TROPFEN ()
     Route: 048
  9. ESCITALOPRAM [Concomitant]
     Active Substance: ESCITALOPRAM OXALATE
     Indication: PRODUCT USED FOR UNKNOWN INDICATION
     Dosage: 20 MG, 1-0-0-0, TABLETTEN ()
     Route: 048
  10. CALCIUM FOLINAT [Suspect]
     Active Substance: LEUCOVORIN CALCIUM
     Indication: PRODUCT USED FOR UNKNOWN INDICATION
     Dosage: 200 MG/M2, ZULETZT AM10.11.2017, INJEKTIONS-/INFUSIONSLOSUNG ()
     Route: 042
  11. LOPERAMID [Concomitant]
     Active Substance: LOPERAMIDE
     Indication: PRODUCT USED FOR UNKNOWN INDICATION
     Dosage: 2 MG, BEI BEDARD, TABLETTEN ()
     Route: 048
  12. SANCUSO 3,1MG/24 STUNDEN [Concomitant]
     Indication: PRODUCT USED FOR UNKNOWN INDICATION
     Dosage: 3.1 MG, UER 24 H, PFLASTER TRANSDERMAL ()
     Route: 062
  13. CHRISTROSE [Concomitant]
     Indication: PRODUCT USED FOR UNKNOWN INDICATION
     Dosage: NK NK, NK, AMPULLEN ()
     Route: 048
  14. OXALIPLATIN. [Suspect]
     Active Substance: OXALIPLATIN
     Indication: PRODUCT USED FOR UNKNOWN INDICATION
     Dosage: 50 MG/M2, ZULETZT AM10.11.2017, INJEKTIONS-/INFUSIONSLOSUNG ()
     Route: 042

REACTIONS (6)
  - General physical health deterioration [Unknown]
  - Pyrexia [Unknown]
  - Headache [Unknown]
  - Abdominal pain upper [Unknown]
  - Abdominal pain lower [Unknown]
  - Fatigue [Unknown]
